FAERS Safety Report 9750102 (Version 3)
Quarter: 2015Q3

REPORT INFORMATION
  Report Type: Spontaneous
  Country: US (occurrence: US)
  Receive Date: 20131212
  Receipt Date: 20150730
  Transmission Date: 20151125
  Serious: No
  Sender: FDA-Public Use
  Company Number: US-GILEAD-US-CVT-100002

PATIENT
  Age: 60 Year
  Sex: Female
  Weight: 126.26 kg

DRUGS (13)
  1. ENALAPRIL MALEATE. [Concomitant]
     Active Substance: ENALAPRIL MALEATE
  2. TRICOR [Concomitant]
     Active Substance: FENOFIBRATE
  3. ZINC                               /00156501/ [Concomitant]
  4. RANEXA [Suspect]
     Active Substance: RANOLAZINE
  5. HYDROCHLOROTHIAZIDE. [Concomitant]
     Active Substance: HYDROCHLOROTHIAZIDE
  6. GLIPIZIDE. [Concomitant]
     Active Substance: GLIPIZIDE
  7. LEVOXYL [Concomitant]
     Active Substance: LEVOTHYROXINE SODIUM
  8. RANEXA [Suspect]
     Active Substance: RANOLAZINE
     Indication: ANGINA PECTORIS
     Route: 048
     Dates: start: 20091204
  9. SIMVASTATIN. [Concomitant]
     Active Substance: SIMVASTATIN
  10. NEBIVOLOL. [Concomitant]
     Active Substance: NEBIVOLOL
  11. ECOTRIN [Concomitant]
     Active Substance: ASPIRIN
  12. LEVEMIR [Concomitant]
     Active Substance: INSULIN DETEMIR
  13. ACTOS /01460201/ [Concomitant]

REACTIONS (1)
  - Psoriasis [Unknown]
